FAERS Safety Report 6659615-2 (Version None)
Quarter: 2010Q1

REPORT INFORMATION
  Report Type: 
  Country: None (occurrence: None)
  Receive Date: 20100330
  Receipt Date: 20100318
  Transmission Date: 20100710
  Serious: Yes (Other)
  Sender: FDA-Public Use
  Company Number: US-PFIZER INC-2010035572

PATIENT

DRUGS (1)
  1. SULFASALAZINE [Suspect]

REACTIONS (3)
  - DIARRHOEA [None]
  - HAEMORRHAGE [None]
  - POLLAKIURIA [None]
